FAERS Safety Report 4536032-2 (Version None)
Quarter: 2004Q4

REPORT INFORMATION
  Report Type: 
  Country: None (occurrence: None)
  Receive Date: 20041216
  Receipt Date: 20031020
  Transmission Date: 20050328
  Serious: Yes (Disabling)
  Sender: FDA-Public Use
  Company Number: HQWYE963302OCT03

PATIENT
  Age: 56 Year
  Sex: Female
  Weight: 45.4 kg

DRUGS (8)
  1. EFFEXOR XR [Suspect]
     Indication: DEPRESSION
     Dosage: SEE IMAGE
     Route: 048
     Dates: start: 20030701, end: 20030827
  2. EFFEXOR XR [Suspect]
     Indication: DEPRESSION
     Dosage: SEE IMAGE
     Route: 048
     Dates: start: 20030828, end: 20030916
  3. EFFEXOR [Suspect]
     Dosage: 37.5 MG 1X PER 1 DAY, ORAL
     Route: 048
     Dates: start: 20030917, end: 20030926
  4. SYNTHROID [Concomitant]
  5. KLONOPIN [Concomitant]
  6. VICODIN [Concomitant]
  7. CELEBREX [Concomitant]
  8. ESTROGEN NOS (ESTROGEN NOS) [Concomitant]

REACTIONS (9)
  - COLD SWEAT [None]
  - DIARRHOEA [None]
  - DRUG WITHDRAWAL SYNDROME [None]
  - HYPERHIDROSIS [None]
  - INSOMNIA [None]
  - NAUSEA [None]
  - PARAESTHESIA [None]
  - SEXUAL DYSFUNCTION [None]
  - VERTIGO [None]
